FAERS Safety Report 6681151-8 (Version None)
Quarter: 2010Q2

REPORT INFORMATION
  Report Type: 
  Country: None (occurrence: None)
  Receive Date: 20100414
  Receipt Date: 20100408
  Transmission Date: 20101027
  Serious: Yes (Death)
  Sender: FDA-Public Use
  Company Number: US-ROCHE-696547

PATIENT
  Sex: Female
  Weight: 55 kg

DRUGS (17)
  1. PEGINTERFERON ALFA-2A [Suspect]
     Dosage: LAST DOSE PRIOR TO SAE: 01 MARCH 2010
     Route: 058
     Dates: start: 20090302, end: 20100317
  2. RIBAVIRIN [Suspect]
     Dosage: DOSE 400 MG AM AND 600 MG PM, LAST DOSE PRIOR TO SAE: 04 MAR 2010
     Route: 048
     Dates: start: 20090309, end: 20100317
  3. PROCRIT [Concomitant]
     Dosage: TDD: 40000 UNIT
     Dates: start: 20091005, end: 20100304
  4. NEURONTIN [Concomitant]
     Dates: start: 20090323
  5. PHENERGAN [Concomitant]
     Dates: start: 20090309
  6. NYSTATIN [Concomitant]
     Dates: start: 20090309
  7. HYDROCODONE BITARTRATE [Concomitant]
     Dates: start: 20090223
  8. DESOXYMETHASONE CREAM [Concomitant]
     Dates: start: 20100105
  9. ALBUTEROL SULFATE AUTOHALER [Concomitant]
     Dates: start: 20100105
  10. SYMBICORT [Concomitant]
     Dates: start: 20100105
  11. TRAZODONE [Concomitant]
     Dates: start: 20080101
  12. SEROQUEL [Concomitant]
     Dates: start: 20080101
  13. PRAVASTATIN [Concomitant]
     Dates: start: 20080101
  14. PROZAC [Concomitant]
     Dates: start: 20080101
  15. NEXIUM [Concomitant]
     Dates: start: 20080101
  16. OXAPROZIN [Concomitant]
     Dates: start: 20080101
  17. METHOCARBAMOL [Concomitant]
     Dates: start: 20000101

REACTIONS (1)
  - DEATH [None]
